FAERS Safety Report 10732043 (Version 1)
Quarter: 2015Q1

REPORT INFORMATION
  Report Type: Spontaneous
  Country: US (occurrence: None)
  Receive Date: 20150121
  Receipt Date: 20150121
  Transmission Date: 20150721
  Serious: Yes (Other)
  Sender: FDA-Public Use
  Company Number: None

PATIENT
  Age: 56 Year
  Sex: Female
  Weight: 90.72 kg

DRUGS (1)
  1. HUMIRA [Suspect]
     Active Substance: ADALIMUMAB
     Indication: ANKYLOSING SPONDYLITIS
     Dosage: 1 INJECTION  2X MONTH  INTO THE MUSCLE
     Route: 030
     Dates: start: 20120109, end: 20141201

REACTIONS (2)
  - Malignant melanoma [None]
  - Basal cell carcinoma [None]

NARRATIVE: CASE EVENT DATE: 20141217
